FAERS Safety Report 6002199-2 (Version None)
Quarter: 2008Q4

REPORT INFORMATION
  Report Type: 
  Country: None (occurrence: None)
  Receive Date: 20081212
  Receipt Date: 20081202
  Transmission Date: 20090506
  Serious: Yes (Death)
  Sender: FDA-Public Use
  Company Number: GXKR2008US11519

PATIENT
  Age: 64 Year
  Sex: Female

DRUGS (5)
  1. HYDROXYCHLOROQUINE [Suspect]
     Dosage: 200 MG/DAY
  2. SIMVASTATIN+EZETIMIBE (NGX) (SIMVASTATIN, EZETIMIBE) [Suspect]
     Dosage: 10 MG/DAY
  3. LISINOPRIL [Concomitant]
  4. RALOXIFENE HCL [Concomitant]
  5. DILTIAZEM [Concomitant]

REACTIONS (13)
  - ASPERGILLOSIS [None]
  - DYSPHONIA [None]
  - DYSPNOEA [None]
  - DYSPNOEA EXERTIONAL [None]
  - GENERAL PHYSICAL HEALTH DETERIORATION [None]
  - HYPOREFLEXIA [None]
  - LUNG DISORDER [None]
  - MUSCULAR WEAKNESS [None]
  - MYOPATHY [None]
  - NOCARDIOSIS [None]
  - PULMONARY FIBROSIS [None]
  - RESPIRATORY FAILURE [None]
  - RESPIRATORY TRACT INFECTION [None]
